FAERS Safety Report 9925770 (Version 1)
Quarter: 2014Q1

REPORT INFORMATION
  Report Type: Spontaneous
  Country: IT (occurrence: IT)
  Receive Date: 20140226
  Receipt Date: 20140226
  Transmission Date: 20141002
  Serious: Yes (Other)
  Sender: FDA-Public Use
  Company Number: IT-TEVA-463580ISR

PATIENT
  Age: 87 Year
  Sex: Female
  Weight: 56 kg

DRUGS (1)
  1. OLANZAPINA [Suspect]
     Indication: MANIA
     Dosage: 10 MILLIGRAM DAILY;
     Route: 048
     Dates: start: 20131210

REACTIONS (2)
  - Conduct disorder [Recovered/Resolved]
  - Product substitution issue [Unknown]
